FAERS Safety Report 4625189-0 (Version None)
Quarter: 2005Q2

REPORT INFORMATION
  Report Type: 
  Country: None (occurrence: None)
  Receive Date: 20050325
  Receipt Date: 20050126
  Transmission Date: 20051028
  Serious: No
  Sender: FDA-Public Use
  Company Number: US_0408104916

PATIENT
  Age: 73 Year
  Sex: Female
  Weight: 49 kg

DRUGS (8)
  1. HUMALOG [Suspect]
  2. FORTEO [Suspect]
     Indication: OSTEOPOROSIS
     Dosage: 20 UG/ 1 DAY
     Dates: start: 20040906
  3. ZOCOR (SIMVASTATIN RATIOPHARM) [Concomitant]
  4. LANOXICAPS (DIGOXIN STREULI) [Concomitant]
  5. ALTACE [Concomitant]
  6. CALCIUM WITH VITAMIN D [Concomitant]
  7. MAGNESIUM [Concomitant]
  8. MULTI-VITAMIN [Concomitant]

REACTIONS (3)
  - INSOMNIA [None]
  - OSTEOPOROSIS [None]
  - PALPITATIONS [None]
